FAERS Safety Report 7288181-6 (Version None)
Quarter: 2011Q1

REPORT INFORMATION
  Report Type: 
  Country: None (occurrence: None)
  Receive Date: 20110211
  Receipt Date: 20110203
  Transmission Date: 20110831
  Serious: Yes (Other)
  Sender: FDA-Public Use
  Company Number: JP-JNJFOC-20101203595

PATIENT

DRUGS (6)
  1. RISPERDAL [Suspect]
     Route: 048
  2. RISPERDAL [Suspect]
     Indication: PRODUCT USED FOR UNKNOWN INDICATION
     Route: 048
  3. HIRNAMINE [Concomitant]
     Route: 065
  4. RISPERDAL [Suspect]
     Route: 048
  5. IMPROMEN [Concomitant]
     Route: 048
  6. SERENACE [Concomitant]
     Route: 065

REACTIONS (3)
  - HYPOAESTHESIA [None]
  - TREMOR [None]
  - HAEMATURIA [None]
